FAERS Safety Report 17899507 (Version 1)
Quarter: 2020Q2

REPORT INFORMATION
  Report Type: Spontaneous
  Country: US (occurrence: US)
  Receive Date: 20200613
  Receipt Date: 20200613
  Transmission Date: 20200714
  Serious: Yes (Hospitalization)
  Sender: FDA-Public Use
  Company Number: None

PATIENT
  Age: 67 Year
  Sex: Female
  Weight: 82.9 kg

DRUGS (1)
  1. CYTARABINE. [Suspect]
     Active Substance: CYTARABINE
     Dates: end: 20200611

REACTIONS (4)
  - Febrile neutropenia [None]
  - White blood cell count decreased [None]
  - Fatigue [None]
  - Neutrophil count decreased [None]

NARRATIVE: CASE EVENT DATE: 20200609
